FAERS Safety Report 7136605-7 (Version None)
Quarter: 2010Q4

REPORT INFORMATION
  Report Type: 
  Country: None (occurrence: None)
  Receive Date: 20101206
  Receipt Date: 20101203
  Transmission Date: 20110411
  Serious: Yes (Other)
  Sender: FDA-Public Use
  Company Number: US-RANBAXY-2010US-39744

PATIENT
  Age: 33 Year
  Sex: Male

DRUGS (2)
  1. LORATADINE [Suspect]
     Indication: RHINITIS ALLERGIC
     Dosage: 10 MG/D, UNK
     Route: 065
  2. ZIAC [Concomitant]
     Indication: HYPERTENSION
     Dosage: 2.5 MG + 6.25 MG
     Route: 065

REACTIONS (2)
  - CHOLESTATIC LIVER INJURY [None]
  - HEPATOTOXICITY [None]
